FAERS Safety Report 8076923-1 (Version None)
Quarter: 2012Q1

REPORT INFORMATION
  Report Type: 
  Country: None (occurrence: None)
  Receive Date: 20120127
  Receipt Date: 20120117
  Transmission Date: 20120608
  Serious: Yes (Other)
  Sender: FDA-Public Use
  Company Number: PHHY2012DE004685

PATIENT
  Sex: Female

DRUGS (2)
  1. ATACAND HCT [Suspect]
     Dates: end: 20120101
  2. RASILEZ HCT [Suspect]

REACTIONS (4)
  - TONGUE INJURY [None]
  - GLOSSODYNIA [None]
  - THROAT IRRITATION [None]
  - SWOLLEN TONGUE [None]
